FAERS Safety Report 17049232 (Version 2)
Quarter: 2019Q4

REPORT INFORMATION
  Report Type: Spontaneous
  Country: US (occurrence: US)
  Receive Date: 20191119
  Receipt Date: 20191213
  Transmission Date: 20200122
  Serious: Yes (Hospitalization)
  Sender: FDA-Public Use
  Company Number: US-ASTRAZENECA-2019SF61503

PATIENT
  Age: 871 Month
  Sex: Female
  Weight: 59 kg

DRUGS (36)
  1. ESCITALOPRAM [Concomitant]
     Active Substance: ESCITALOPRAM OXALATE
  2. MONUROL [Concomitant]
     Active Substance: FOSFOMYCIN TROMETHAMINE
  3. FUROSEMIDE. [Concomitant]
     Active Substance: FUROSEMIDE
  4. ATORVASTATIN [Concomitant]
     Active Substance: ATORVASTATIN
  5. LEVOTHYROXINE. [Concomitant]
     Active Substance: LEVOTHYROXINE
  6. OMEPRAZOLE. [Concomitant]
     Active Substance: OMEPRAZOLE
  7. ALPRAZOLAM. [Concomitant]
     Active Substance: ALPRAZOLAM
     Dosage: 0.5MG UNKNOWN
     Dates: end: 201907
  8. DULCOLAX NOS [Concomitant]
     Active Substance: BISACODYL OR DOCUSATE SODIUM
     Dates: start: 20190709
  9. VITAMIN D3 [Concomitant]
     Active Substance: CHOLECALCIFEROL
  10. FERROUS GLUCONATE [Concomitant]
     Active Substance: FERROUS GLUCONATE
  11. CLONAZEPAM. [Concomitant]
     Active Substance: CLONAZEPAM
     Dates: end: 201907
  12. NEXIUM [Suspect]
     Active Substance: ESOMEPRAZOLE MAGNESIUM
     Route: 048
  13. GOCOVRI [Suspect]
     Active Substance: AMANTADINE
     Route: 048
     Dates: start: 20180517, end: 2018
  14. ASPIRIN. [Concomitant]
     Active Substance: ASPIRIN
     Route: 048
  15. VESICARE [Concomitant]
     Active Substance: SOLIFENACIN SUCCINATE
     Dates: end: 2019
  16. CHOLECALCIFEROL [Concomitant]
     Active Substance: CHOLECALCIFEROL
     Dosage: 1000 IU
  17. VALIUM [Concomitant]
     Active Substance: DIAZEPAM
     Indication: AGITATION
     Dosage: 2 MG WAS ADMINISTERED EVERY NIGHT AND 1 MG TWICE DAILY WAS ADMINISTERED AS NEEDED
  18. OMEGA-3 ACIDS [Concomitant]
     Active Substance: OMEGA-3 FATTY ACIDS
  19. PREDNISONE. [Concomitant]
     Active Substance: PREDNISONE
  20. SINEMET CR [Concomitant]
     Active Substance: CARBIDOPA\LEVODOPA
     Dosage: 25-100 MG
  21. FLONASE [Concomitant]
     Active Substance: FLUTICASONE PROPIONATE
  22. LISINOPRIL. [Suspect]
     Active Substance: LISINOPRIL
     Route: 048
  23. MELOXICAM. [Concomitant]
     Active Substance: MELOXICAM
     Dates: start: 201907
  24. RASAGILINE MESYLATE. [Concomitant]
     Active Substance: RASAGILINE MESYLATE
     Dates: end: 201901
  25. REMERON [Concomitant]
     Active Substance: MIRTAZAPINE
     Dates: end: 201902
  26. LASIX [Concomitant]
     Active Substance: FUROSEMIDE
  27. RESTASIS [Concomitant]
     Active Substance: CYCLOSPORINE
  28. MEDICAL MARIJUANA [Concomitant]
     Active Substance: CANNABIS SATIVA SUBSP. INDICA TOP
  29. METHENAMINE [Concomitant]
     Active Substance: METHENAMINE
     Dates: end: 201907
  30. MUPIROCIN. [Concomitant]
     Active Substance: MUPIROCIN
     Dates: end: 201907
  31. CYCLOSPORINE. [Concomitant]
     Active Substance: CYCLOSPORINE
  32. HALDOL [Concomitant]
     Active Substance: HALOPERIDOL
  33. SEROQUEL [Suspect]
     Active Substance: QUETIAPINE FUMARATE
     Route: 048
     Dates: end: 201907
  34. GOCOVRI [Suspect]
     Active Substance: AMANTADINE
     Route: 048
     Dates: start: 20190511, end: 20190516
  35. RASAGILINE MESYLATE. [Concomitant]
     Active Substance: RASAGILINE MESYLATE
     Dates: start: 2019, end: 201905
  36. MULTI-VITAMIN [Concomitant]
     Active Substance: .ALPHA.-TOCOPHEROL ACETATE, DL-\ASCORBIC ACID\CYANOCOBALAMIN\FLUORIDE ION\FOLIC ACID\NIACIN\PYRIDOXINE\RIBOFLAVIN\THIAMINE\VITAMIN A\VITAMIN D

REACTIONS (16)
  - Parkinson^s disease psychosis [Unknown]
  - Confusional state [Recovered/Resolved]
  - Urinary tract infection [Unknown]
  - Gait inability [Recovering/Resolving]
  - Acute kidney injury [Unknown]
  - Depression [Unknown]
  - Dehydration [Unknown]
  - Dysstasia [Recovering/Resolving]
  - Urinary tract disorder [Unknown]
  - Anxiety [Recovered/Resolved]
  - Hallucination, visual [Recovered/Resolved]
  - Hypotension [Unknown]
  - Urosepsis [Unknown]
  - Hypophagia [Unknown]
  - Loss of personal independence in daily activities [Recovering/Resolving]
  - Hypernatraemia [Unknown]

NARRATIVE: CASE EVENT DATE: 201805
